FAERS Safety Report 7471185-8 (Version None)
Quarter: 2011Q2

REPORT INFORMATION
  Report Type: 
  Country: None (occurrence: None)
  Receive Date: 20110510
  Receipt Date: 20110504
  Transmission Date: 20111010
  Serious: Yes (Hospitalization, Other)
  Sender: FDA-Public Use
  Company Number: US-ABBOTT-11P-163-0723980-00

PATIENT
  Age: 67 Year
  Sex: Female

DRUGS (7)
  1. LISINOPRIL [Concomitant]
     Indication: HYPERTENSION
  2. OXYBUTYNIN [Concomitant]
     Indication: URINARY INCONTINENCE
  3. HUMIRA [Suspect]
     Indication: RHEUMATOID ARTHRITIS
     Dates: start: 20030101
  4. SIMVASTATIN [Concomitant]
     Indication: BLOOD CHOLESTEROL INCREASED
  5. ATENOLOL [Concomitant]
     Indication: HYPERTENSION
  6. BARIUM DYE [Suspect]
     Indication: DIAGNOSTIC PROCEDURE
  7. METFORMIN HCL [Concomitant]
     Indication: DIABETES MELLITUS
     Dosage: 1 IN 1 DAY, 15/500

REACTIONS (8)
  - SWELLING FACE [None]
  - LIP SWELLING [None]
  - ECZEMA [None]
  - SWOLLEN TONGUE [None]
  - RASH PUSTULAR [None]
  - INTESTINAL OBSTRUCTION [None]
  - RASH PRURITIC [None]
  - APPENDICITIS PERFORATED [None]
